FAERS Safety Report 8532046-6 (Version None)
Quarter: 2012Q3

REPORT INFORMATION
  Report Type: 
  Country: None (occurrence: None)
  Receive Date: 20120723
  Receipt Date: 20120716
  Transmission Date: 20120928
  Serious: Yes (Hospitalization)
  Sender: FDA-Public Use
  Company Number: US-GLAXOSMITHKLINE-A0971391A

PATIENT
  Age: 59 Year
  Sex: Male

DRUGS (10)
  1. EZETIMIBE [Concomitant]
  2. SPIRONOLACTONE [Suspect]
     Indication: PRODUCT USED FOR UNKNOWN INDICATION
  3. CARVEDILOL [Suspect]
     Indication: PRODUCT USED FOR UNKNOWN INDICATION
  4. ASPIRIN [Concomitant]
  5. STATINS [Concomitant]
  6. INVESTIGATIONAL STUDY DRUG [Concomitant]
     Indication: TYPE 2 DIABETES MELLITUS
     Dates: start: 20110325
  7. ANTICOAGULANT [Concomitant]
  8. FUROSEMIDE [Suspect]
     Indication: PRODUCT USED FOR UNKNOWN INDICATION
  9. TORSEMIDE [Suspect]
     Indication: PRODUCT USED FOR UNKNOWN INDICATION
  10. FENOFIBRATE [Concomitant]

REACTIONS (3)
  - IRRITABLE BOWEL SYNDROME [None]
  - RENAL FAILURE ACUTE [None]
  - HYPOTENSION [None]
